FAERS Safety Report 14988116 (Version 13)
Quarter: 2018Q4

REPORT INFORMATION
  Report Type: Spontaneous
  Country: US (occurrence: US)
  Receive Date: 20180608
  Receipt Date: 20181201
  Transmission Date: 20190204
  Serious: Yes (Other)
  Sender: FDA-Public Use
  Company Number: US-PFIZER INC-2018233991

PATIENT
  Age: 67 Year
  Sex: Male
  Weight: 108 kg

DRUGS (11)
  1. SUTENT [Suspect]
     Active Substance: SUNITINIB MALATE
     Indication: RENAL CELL CARCINOMA
     Dosage: 50 MG, CYCLIC (2 WEEKS ON/1 WEEK OFF)
     Route: 048
  2. NEXIUM [ESOMEPRAZOLE MAGNESIUM] [Concomitant]
     Dosage: UNK UNK, AS NEEDED
  3. IRON [Concomitant]
     Active Substance: IRON
     Dosage: UNK
  4. SUTENT [Suspect]
     Active Substance: SUNITINIB MALATE
     Dosage: 37.5 MG, CYCLIC (2 WEEKS ON/1 WEEK OFF)
     Route: 048
     Dates: start: 20180527
  5. LEVOTHYROXINE. [Concomitant]
     Active Substance: LEVOTHYROXINE
     Dosage: UNK
  6. ENALAPRIL [Concomitant]
     Active Substance: ENALAPRIL
     Dosage: 5 MG, 2X/DAY
  7. ALLOPURINOL. [Concomitant]
     Active Substance: ALLOPURINOL
     Indication: GOUT
     Dosage: 300 MG, 1X/DAY(QD)
     Dates: start: 20180205
  8. ZYRTEC [Concomitant]
     Active Substance: CETIRIZINE HYDROCHLORIDE
     Indication: SEASONAL ALLERGY
     Dosage: 10 MG, 1X/DAY(QD)
     Dates: start: 20180503
  9. TIROSINT [Concomitant]
     Active Substance: LEVOTHYROXINE SODIUM
     Indication: HYPOTHYROIDISM
     Dosage: 50 UG, 1X/DAY(QD)
     Dates: start: 20180515
  10. PRILOSEC [Concomitant]
     Active Substance: OMEPRAZOLE MAGNESIUM
     Dosage: UNK
  11. OMEPRAZOLE. [Concomitant]
     Active Substance: OMEPRAZOLE
     Dosage: UNK

REACTIONS (31)
  - Fatigue [Not Recovered/Not Resolved]
  - Appetite disorder [Recovering/Resolving]
  - Nausea [Unknown]
  - Yellow skin [Recovered/Resolved]
  - Pain in extremity [Recovered/Resolved]
  - Blood pressure increased [Recovered/Resolved]
  - Condition aggravated [Not Recovered/Not Resolved]
  - Dyspepsia [Not Recovered/Not Resolved]
  - White blood cell count decreased [Recovered/Resolved]
  - Hepatic enzyme increased [Unknown]
  - Hyperkeratosis [Unknown]
  - Liver function test increased [Recovered/Resolved]
  - Abnormal faeces [Recovered/Resolved]
  - Asthenia [Unknown]
  - Oral disorder [Unknown]
  - Jaundice [Unknown]
  - Flatulence [Recovered/Resolved]
  - Oral pain [Recovered/Resolved]
  - Weight decreased [Unknown]
  - Glossodynia [Unknown]
  - Dry skin [Recovered/Resolved]
  - Decreased appetite [Recovered/Resolved]
  - Rash [Recovered/Resolved]
  - Erythema [Unknown]
  - Thrombocytopenia [Recovered/Resolved]
  - Skin exfoliation [Recovered/Resolved]
  - Anaemia [Recovered/Resolved]
  - Hyperaesthesia [Unknown]
  - Diarrhoea [Recovered/Resolved]
  - Chromaturia [Recovered/Resolved]
  - Dysgeusia [Recovering/Resolving]

NARRATIVE: CASE EVENT DATE: 2018
